FAERS Safety Report 9562251 (Version 1)
Quarter: 2013Q3

REPORT INFORMATION
  Report Type: Spontaneous
  Country: US (occurrence: US)
  Receive Date: 20130927
  Receipt Date: 20130927
  Transmission Date: 20140515
  Serious: Yes (Other)
  Sender: FDA-Public Use
  Company Number: US-BAYER-2013-117037

PATIENT
  Age: 72 Year
  Sex: Female
  Weight: 58 kg

DRUGS (9)
  1. BAYER ASPIRIN REGIMEN ADULT LOW STRENGTH [Suspect]
     Indication: ISCHAEMIC HEART DISEASE PROPHYLAXIS
     Dosage: 1 DF, QD
     Route: 048
  2. LOSARTAN POTASSIUM [Concomitant]
  3. TRAMADOL [Concomitant]
  4. CENTRUM [MINERALS NOS,VITAMINS NOS] [Concomitant]
  5. B12 [Concomitant]
  6. VITAMIN D3 [Concomitant]
  7. BIOTIN [Concomitant]
  8. CITRACAL MAXIMUM [Concomitant]
  9. METOPROLOL [Concomitant]

REACTIONS (4)
  - Anaemia [Recovered/Resolved]
  - Gastric haemorrhage [Recovered/Resolved]
  - Dyspepsia [Recovered/Resolved]
  - Fatigue [Recovered/Resolved]
